FAERS Safety Report 9056650 (Version 1)
Quarter: 2013Q1

REPORT INFORMATION
  Report Type: Report from Study
  Country: ES (occurrence: ES)
  Receive Date: 20130204
  Receipt Date: 20130204
  Transmission Date: 20140127
  Serious: Yes (Hospitalization, Other)
  Sender: FDA-Public Use
  Company Number: ES-PFIZER INC-ES-WYE-H09852809

PATIENT
  Age: 23 Year
  Sex: Female
  Weight: 38 kg

DRUGS (49)
  1. AMLODIPINE BESILATE [Concomitant]
     Dosage: 5 MG, 2X/DAY
     Route: 048
     Dates: start: 20040513
  2. ATENOLOL [Concomitant]
     Dosage: 25 MG, 1X/DAY
     Route: 048
     Dates: start: 20030121, end: 20040203
  3. ROCALTROL [Concomitant]
     Dosage: 0.25 UG, ALTERNATE DAY
     Route: 048
     Dates: start: 20040227
  4. ROCALTROL [Concomitant]
     Dosage: 0.25 UG, 1X/DAY
     Route: 048
     Dates: start: 20040317
  5. ROCALTROL [Concomitant]
     Dosage: 0.25 UG, 1X/DAY
     Route: 048
     Dates: start: 20050114
  6. CEFOTAXIME SODIUM [Concomitant]
     Dosage: 750 MG 1 IN TOTAL
     Route: 030
     Dates: start: 20030130
  7. CEFUROXIME [Concomitant]
     Dosage: UNK
     Route: 042
     Dates: end: 20030121
  8. CEFUROXIME [Concomitant]
     Dosage: 250 MG, 2X/DAY
     Route: 048
     Dates: start: 20030124
  9. GANCICLOVIR [Concomitant]
     Dosage: 60 MG, 1X/DAY
     Route: 042
     Dates: start: 20030118, end: 20030121
  10. GANCICLOVIR [Concomitant]
     Dosage: 250 MG, 2X/DAY
     Route: 042
     Dates: start: 20040526, end: 20040531
  11. NORMAL HUMAN IMMUNOGLOBULIN [Concomitant]
     Dosage: 15 G IN TOTAL
     Route: 042
     Dates: start: 20030123
  12. NORMAL HUMAN IMMUNOGLOBULIN [Concomitant]
     Dosage: 15 G IN TOTAL
     Route: 042
     Dates: start: 20040213
  13. NORMAL HUMAN IMMUNOGLOBULIN [Concomitant]
     Dosage: 15 G IN TOTAL
     Route: 042
     Dates: start: 20040305
  14. NORMAL HUMAN IMMUNOGLOBULIN [Concomitant]
     Dosage: 15 G IN TOTAL
     Route: 042
     Dates: start: 20040326
  15. PANTOPRAZOLE [Concomitant]
     Dosage: 40 MG, 1X/DAY
     Route: 048
     Dates: start: 20040117
  16. COTRIMOXAZOL [Concomitant]
     Dosage: 400 MG, 1X/DAY
     Route: 048
     Dates: start: 20030120
  17. COTRIMOXAZOL [Concomitant]
     Dosage: UNK
     Route: 048
     Dates: end: 20040226
  18. COTRIMOXAZOL [Concomitant]
     Dosage: UNK
     Route: 048
     Dates: end: 20040717
  19. SEPTRIN [Concomitant]
     Dosage: 400 MG, 1X/DAY
     Route: 048
     Dates: start: 20040528
  20. VALGANCICLOVIR [Concomitant]
     Dosage: 450 MG, ALTERNATE DAY
     Route: 048
     Dates: start: 20040125
  21. VALGANCICLOVIR [Concomitant]
     Dosage: 450 MG, 1X/DAY
     Route: 048
     Dates: start: 20040130, end: 20040417
  22. VALGANCICLOVIR [Concomitant]
     Dosage: 900 MG, 1X/DAY
     Route: 048
     Dates: start: 20040617, end: 20040702
  23. VANCOMYCIN HYDROCHLORIDE [Concomitant]
     Dosage: 1000 MG IN TOTAL
     Route: 042
     Dates: start: 20030117
  24. SODIUM BICARBONATE [Concomitant]
     Dosage: 250 MG, 3X/DAY
     Route: 042
     Dates: start: 20040117, end: 20040120
  25. RAPAMUNE [Suspect]
     Indication: PROPHYLAXIS AGAINST TRANSPLANT REJECTION
     Dosage: 9 MG, 1X/DAY
     Route: 048
     Dates: start: 20030117
  26. RAPAMUNE [Suspect]
     Dosage: 3 MG, 1X/DAY
     Route: 048
     Dates: start: 20030120
  27. RAPAMUNE [Suspect]
     Dosage: 2 MG, 1X/DAY
     Route: 048
     Dates: start: 20040313, end: 20040604
  28. METHYLPREDNISOLONE SODIUM SUCCINATE [Suspect]
     Dosage: 500 MG, 1X/DAY
     Route: 042
     Dates: start: 20030117, end: 20030117
  29. METHYLPREDNISOLONE SODIUM SUCCINATE [Suspect]
     Dosage: 10 MG, 1X/DAY
     Route: 048
     Dates: start: 20040303
  30. METHYLPREDNISOLONE SODIUM SUCCINATE [Suspect]
     Dosage: 10 MG, 1X/DAY
     Route: 048
     Dates: start: 20040312
  31. DACLIZUMAB [Suspect]
     Dosage: 25 MG, UNK
     Route: 042
     Dates: start: 20040117
  32. DACLIZUMAB [Suspect]
     Dosage: 45 MG, ONCE EVERY 2 WEEKS
     Route: 042
     Dates: start: 20040202, end: 20040315
  33. MYCOPHENOLATE MOFETIL [Suspect]
     Dosage: 1000 MG, SINGLE
     Route: 048
     Dates: start: 20030117
  34. MYCOPHENOLATE MOFETIL [Suspect]
     Dosage: 1000 MG, 2X/DAY
     Route: 048
     Dates: start: 20040118
  35. MYCOPHENOLATE MOFETIL [Suspect]
     Dosage: 750 MG, 2X/DAY
     Route: 048
     Dates: start: 20040130
  36. MYCOPHENOLATE MOFETIL [Suspect]
     Dosage: 500 MG, 2X/DAY
     Route: 048
     Dates: start: 20040423
  37. MYCOPHENOLATE MOFETIL [Suspect]
     Dosage: 500 MG, 1X/DAY
     Route: 048
     Dates: start: 20040527
  38. MYCOPHENOLATE MOFETIL [Suspect]
     Dosage: 500 MG, 2X/DAY
     Route: 048
     Dates: start: 20040603
  39. MYCOPHENOLATE MOFETIL [Suspect]
     Dosage: 750 MG, 2X/DAY
     Route: 048
     Dates: start: 20040608
  40. MYCOPHENOLATE MOFETIL [Suspect]
     Dosage: 500 MG, 2X/DAY
     Route: 048
     Dates: start: 20040716
  41. TACROLIMUS [Suspect]
     Indication: PROPHYLAXIS AGAINST TRANSPLANT REJECTION
     Dosage: 2 MG, 2X/DAY
     Route: 048
     Dates: start: 20040604
  42. TACROLIMUS [Suspect]
     Dosage: 2.5 MG, 2X/DAY
     Route: 048
     Dates: start: 20040609
  43. TACROLIMUS [Suspect]
     Dosage: 2.5 MG, 1X/DAY
     Route: 048
     Dates: start: 20050929
  44. PREDNISONE [Suspect]
     Indication: PROPHYLAXIS AGAINST TRANSPLANT REJECTION
     Dosage: 20 MG, 1X/DAY
     Route: 048
     Dates: start: 20030118
  45. PREDNISONE [Suspect]
     Dosage: 10 MG, 1X/DAY
     Route: 048
     Dates: start: 20040203
  46. PREDNISONE [Suspect]
     Dosage: 5 MG, 1X/DAY
     Route: 048
     Dates: start: 20040513
  47. PREDNISONE [Suspect]
     Dosage: 2.5 MG, ALTERNATE DAY
     Route: 048
     Dates: start: 20050929
  48. ALTRETAMINE [Concomitant]
     Dosage: 20 ML, 3X/DAY
     Route: 042
     Dates: start: 20040117, end: 20040124
  49. AMLODIPINE BESILATE [Concomitant]
     Dosage: 5 MG, 1X/DAY
     Route: 048
     Dates: start: 20030119

REACTIONS (3)
  - Acute respiratory failure [Recovered/Resolved]
  - Renal impairment [Recovered/Resolved]
  - Cytomegalovirus gastrointestinal infection [Recovered/Resolved]
